FAERS Safety Report 24721888 (Version 1)
Quarter: 2024Q4

REPORT INFORMATION
  Report Type: 
  Country: US (occurrence: US)
  Receive Date: 20241211
  Receipt Date: 20241211
  Transmission Date: 20250114
  Serious: Yes (Life-Threatening, Hospitalization, Other)
  Sender: CB FLEET
  Company Number: US-PRESTIGE-202412-US-003989

PATIENT
  Age: 47 Year
  Sex: Male

DRUGS (1)
  1. ASPIRIN [Suspect]
     Active Substance: ASPIRIN
     Indication: Overdose
     Dosage: UNKNOWN DOSE
     Route: 048

REACTIONS (2)
  - Toxicity to various agents [Recovered/Resolved]
  - Intentional overdose [Unknown]
